FAERS Safety Report 5517568-4 (Version None)
Quarter: 2007Q4

REPORT INFORMATION
  Report Type: 
  Country: None (occurrence: None)
  Receive Date: 20071114
  Receipt Date: 20071102
  Transmission Date: 20080405
  Serious: Yes (Other)
  Sender: FDA-Public Use
  Company Number: US-PFIZER INC-2007078828

PATIENT
  Sex: Male
  Weight: 83.9 kg

DRUGS (7)
  1. VIAGRA [Suspect]
     Indication: ERECTILE DYSFUNCTION
  2. ZYLOPRIM [Interacting]
     Indication: NEPHROLITHIASIS
  3. POTASSIUM CITRATE [Interacting]
     Indication: NEPHROLITHIASIS
  4. ALLOPURINOL [Concomitant]
  5. MOBIC [Concomitant]
     Indication: BACK PAIN
  6. ATENOLOL [Concomitant]
     Indication: BLOOD PRESSURE
  7. PRILOSEC [Concomitant]

REACTIONS (7)
  - DRUG INEFFECTIVE [None]
  - DRUG INTERACTION [None]
  - FEELING HOT [None]
  - NASAL CONGESTION [None]
  - NEPHROLITHIASIS [None]
  - PROSTATIC SPECIFIC ANTIGEN INCREASED [None]
  - SLUGGISHNESS [None]
